FAERS Safety Report 4378435-5 (Version None)
Quarter: 2004Q2

REPORT INFORMATION
  Report Type: 
  Country: None (occurrence: None)
  Receive Date: 20040609
  Receipt Date: 20040601
  Transmission Date: 20050107
  Serious: Yes (Other)
  Sender: FDA-Public Use
  Company Number: S04-USA-03007-01

PATIENT
  Age: 18 Year
  Sex: Female

DRUGS (8)
  1. LEXAPRO [Suspect]
     Indication: ANXIETY
     Dosage: 5 MG QD PO
     Route: 048
     Dates: start: 20030828
  2. LEXAPRO [Suspect]
     Indication: DEPRESSION
     Dosage: 5 MG QD PO
     Route: 048
     Dates: start: 20030828
  3. LEXAPRO [Suspect]
     Indication: ANXIETY
  4. LEXAPRO [Suspect]
     Indication: DEPRESSION
  5. LEXAPRO [Suspect]
     Indication: ANXIETY
     Dosage: 10 MG BID PO
     Route: 048
  6. LEXAPRO [Suspect]
     Indication: DEPRESSION
     Dosage: 10 MG BID PO
     Route: 048
  7. SEROQUEL [Concomitant]
  8. TRILEPTAL [Concomitant]

REACTIONS (2)
  - CONVULSION [None]
  - DELIRIUM [None]
